FAERS Safety Report 8615657-9 (Version None)
Quarter: 2012Q3

REPORT INFORMATION
  Report Type: 
  Country: None (occurrence: None)
  Receive Date: 20120823
  Receipt Date: 20120814
  Transmission Date: 20120928
  Serious: Yes (Other)
  Sender: FDA-Public Use
  Company Number: US-009507513-1208USA006290

PATIENT

DRUGS (1)
  1. FOSAMAX [Suspect]
     Indication: PROPHYLAXIS
     Dosage: 70 MG, QW
     Route: 048
     Dates: start: 20020110

REACTIONS (5)
  - TOOTH EXTRACTION [None]
  - DENTAL CARIES [None]
  - FEMUR FRACTURE [None]
  - SURGERY [None]
  - TOOTH FRACTURE [None]
